FAERS Safety Report 6165737-5 (Version None)
Quarter: 2009Q2

REPORT INFORMATION
  Report Type: 
  Country: None (occurrence: None)
  Receive Date: 20090422
  Receipt Date: 20090409
  Transmission Date: 20091009
  Serious: Yes (Death, Life-Threatening, Hospitalization)
  Sender: FDA-Public Use
  Company Number: 200911124BYL

PATIENT
  Age: 70 Year
  Sex: Male

DRUGS (10)
  1. FLUDARA [Suspect]
     Indication: PERIPHERAL T-CELL LYMPHOMA UNSPECIFIED
     Dosage: 50 MG ORAL
     Route: 048
     Dates: start: 20080729, end: 20080802
  2. CYCLOPHOSPHAMIDE [Suspect]
     Indication: PERIPHERAL T-CELL LYMPHOMA UNSPECIFIED
     Dosage: 200 MG ORAL
     Route: 048
     Dates: start: 20080729, end: 20080802
  3. ITRACONAZOLE [Suspect]
     Indication: ANTIFUNGAL PROPHYLAXIS
     Dosage: 200 MG INTRAVENOUS
     Route: 042
     Dates: start: 20080802, end: 20080813
  4. NEUTROGIN (LENOGRASTIM) [Suspect]
     Indication: NEUTROPHIL COUNT INCREASED
     Dosage: 250 UG INTRAVENOUS
     Route: 042
     Dates: start: 20080802, end: 20080915
  5. MAXIPIME [Suspect]
     Indication: PROPHYLAXIS
     Dosage: 4 G INTRAVENOUS
     Route: 042
     Dates: start: 20080802, end: 20080814
  6. MEROPEN (MEROPENEM) [Suspect]
     Indication: PROPHYLAXIS
     Dosage: 2 G INTRAVENOUS
     Route: 042
     Dates: start: 20080820, end: 20080902
  7. VFEND [Suspect]
     Indication: ANTIFUNGAL PROPHYLAXIS
     Dosage: 400MG INTRAVENOUS
     Route: 042
     Dates: start: 20080917, end: 20080924
  8. CARBENIN [Suspect]
     Indication: PNEUMONIA
     Dosage: 2 G INTRAVENOUS
     Route: 042
     Dates: start: 20080917, end: 20080924
  9. CIPROFLOXACIN HCL [Suspect]
     Indication: PNEUMONIA
     Dosage: 600 MG INTRAVENOUS DRIP
     Route: 041
     Dates: start: 20080921, end: 20081001
  10. CONCENTRATED RED CELLS (HUMAN RED BLOOD CELLS) [Concomitant]

REACTIONS (9)
  - ANAEMIA [None]
  - BLOOD ALKALINE PHOSPHATASE INCREASED [None]
  - CYSTITIS HAEMORRHAGIC [None]
  - GAMMA-GLUTAMYLTRANSFERASE INCREASED [None]
  - HYPOALBUMINAEMIA [None]
  - LYMPHOCYTE COUNT DECREASED [None]
  - NEUTROPHIL COUNT DECREASED [None]
  - PNEUMONIA [None]
  - RENAL FAILURE [None]
